FAERS Safety Report 5577629-0 (Version None)
Quarter: 2007Q4

REPORT INFORMATION
  Report Type: 
  Country: None (occurrence: None)
  Receive Date: 20071231
  Receipt Date: 20071221
  Transmission Date: 20080405
  Serious: Yes (Hospitalization)
  Sender: FDA-Public Use
  Company Number: PHEH2007US14978

PATIENT
  Age: 67 Year
  Sex: Male

DRUGS (27)
  1. AVANDIA [Concomitant]
     Dosage: 4 MG, UNK
     Dates: end: 20060901
  2. NOVOLOG [Concomitant]
     Dosage: 6 MG, UNK
     Dates: end: 20060901
  3. ZOMETA [Suspect]
     Indication: MULTIPLE MYELOMA
     Dosage: 4 MG MONTHLY
     Dates: start: 20060701, end: 20060801
  4. REVLIMID [Suspect]
     Indication: MULTIPLE MYELOMA
     Dosage: 10 MG, UNK
     Route: 048
     Dates: start: 20060605
  5. REVLIMID [Suspect]
     Dosage: 10MG DAILY X 21 DAYS
     Dates: start: 20070703
  6. REPAGLINIDE [Concomitant]
     Dosage: 2MG AC
     Route: 048
  7. EPOETIN ALFA [Concomitant]
     Dosage: 4000 UNITS Q7DAYS
     Route: 058
  8. DOCUSATE SODIUM [Concomitant]
     Dosage: 100 MG, BID
  9. LACTULOSE [Concomitant]
     Indication: CONSTIPATION
     Dosage: 30ML M-W-F
     Route: 048
     Dates: start: 20070703
  10. LACTULOSE [Concomitant]
     Dosage: 20GM/30ML QHS
     Route: 048
  11. INSULIN GLARGINE [Concomitant]
     Dosage: RDNA OR 50UNIT/0.5ML QHS
     Route: 058
  12. INSULIN GLARGINE [Concomitant]
     Dosage: RDNA OR 65UNIT/0.65ML QHS
     Route: 058
  13. HUMALOG [Concomitant]
     Dosage: 20MG/0.2ML AC
     Route: 058
  14. AMLODIPINE BESYLATE [Concomitant]
     Dosage: 10 MG, QD
     Route: 048
  15. POTASSIUM PHOSPHATE MONOBASIC [Concomitant]
     Dosage: 250 MG, QID
     Route: 048
  16. DEXAMETHASONE TAB [Concomitant]
     Dosage: 4 MG, Q6H
     Route: 048
  17. ROSIGLITAZONE [Concomitant]
     Dosage: 2 MG, QD
     Route: 048
  18. HYDROCHLOROTHIAZIDE [Concomitant]
  19. FAMOTIDINE [Concomitant]
     Dosage: 40 MG, QD
     Route: 048
  20. SUCRALFATE [Concomitant]
     Dosage: 1 G, Q6H
     Route: 048
  21. LOVENOX [Concomitant]
     Indication: THROMBOSIS PROPHYLAXIS
     Dosage: UNK, QD
  22. FENTANYL [Concomitant]
     Indication: PAIN
     Dosage: 75MCG Q72HOURS
     Route: 061
  23. REGLAN [Concomitant]
     Indication: NAUSEA
     Dosage: 10 MG, PRN
  24. VITAMIN CAP [Concomitant]
     Dosage: 1 TAB DAILY
     Route: 048
  25. PERCOCET [Concomitant]
     Indication: PAIN
     Dosage: 5/325MG 1TAB Q4H PRN
     Route: 048
  26. ASCORBIC ACID [Concomitant]
     Dosage: 500 MG, QD
     Route: 048
  27. TYLENOL [Concomitant]
     Dosage: 650MG Q4HRS PAIN/TEMP PRN

REACTIONS (12)
  - ABASIA [None]
  - ASTHENIA [None]
  - CATHETER RELATED INFECTION [None]
  - CONVULSION [None]
  - DIZZINESS [None]
  - FATIGUE [None]
  - HYPOCALCAEMIA [None]
  - HYPOKALAEMIA [None]
  - MALAISE [None]
  - NEUTROPENIA [None]
  - SEPSIS [None]
  - URINARY TRACT INFECTION [None]
